FAERS Safety Report 8838378 (Version 1)
Quarter: 2012Q4

REPORT INFORMATION
  Report Type: 
  Country: IT (occurrence: IT)
  Receive Date: 20121012
  Receipt Date: 20121012
  Transmission Date: 20130627
  Serious: Yes (Hospitalization)
  Sender: FDA-Public Use
  Company Number: IT-TEVA-362928ISR

PATIENT
  Sex: Male

DRUGS (2)
  1. DIAZEPAM [Suspect]
  2. LORAZEPAM [Suspect]

REACTIONS (1)
  - Rhabdomyolysis [Recovering/Resolving]
